FAERS Safety Report 8900855 (Version 1)
Quarter: 2012Q4

REPORT INFORMATION
  Report Type: 
  Country: BE (occurrence: BE)
  Receive Date: 20121109
  Receipt Date: 20121109
  Transmission Date: 20130627
  Serious: Yes (Death)
  Sender: FDA-Public Use
  Company Number: BE-009507513-1211USA002483

PATIENT
  Age: 45 Year
  Sex: Female

DRUGS (1)
  1. TEMOZOLOMIDE [Suspect]
     Indication: METASTATIC NEOPLASM
     Dosage: ten cycles at a carcinoma stage
     Route: 048

REACTIONS (1)
  - Drug intolerance [Fatal]
